FAERS Safety Report 6112015-6 (Version None)
Quarter: 2009Q1

REPORT INFORMATION
  Report Type: 
  Country: None (occurrence: None)
  Receive Date: 20090310
  Receipt Date: 20090227
  Transmission Date: 20090719
  Serious: Yes (Hospitalization)
  Sender: FDA-Public Use
  Company Number: 2009PL000066

PATIENT
  Age: 40 Year
  Sex: Male

DRUGS (2)
  1. AZATHIOPRINE [Suspect]
     Indication: AUTOIMMUNE HEPATITIS
  2. PREDNISOLONE [Suspect]
     Indication: AUTOIMMUNE HEPATITIS

REACTIONS (16)
  - BRAIN ABSCESS [None]
  - BRAIN OEDEMA [None]
  - C-REACTIVE PROTEIN INCREASED [None]
  - CNS VENTRICULITIS [None]
  - DILATATION VENTRICULAR [None]
  - GENERAL PHYSICAL HEALTH DETERIORATION [None]
  - HEADACHE [None]
  - HYDROCEPHALUS [None]
  - LETHARGY [None]
  - LEUKOCYTOSIS [None]
  - LEUKOPENIA [None]
  - MYDRIASIS [None]
  - NOCARDIOSIS [None]
  - PAPILLOEDEMA [None]
  - PYREXIA [None]
  - VOMITING [None]
